FAERS Safety Report 17557917 (Version 4)
Quarter: 2024Q2

REPORT INFORMATION
  Report Type: Report from Study
  Country: IL (occurrence: IL)
  Receive Date: 20200319
  Receipt Date: 20240623
  Transmission Date: 20240716
  Serious: Yes (Other)
  Sender: FDA-Public Use
  Company Number: IL-ABBVIE-20K-082-3322315-00

PATIENT
  Age: 73 Year
  Sex: Male
  Weight: 75 kg

DRUGS (27)
  1. VENETOCLAX [Suspect]
     Active Substance: VENETOCLAX
     Indication: Chronic lymphocytic leukaemia
     Dosage: RAMP-UP
     Route: 048
     Dates: start: 20200203, end: 20200209
  2. VENETOCLAX [Suspect]
     Active Substance: VENETOCLAX
     Indication: Chronic lymphocytic leukaemia
     Dosage: RAMP-UP
     Route: 048
     Dates: start: 20200210, end: 20200216
  3. VENETOCLAX [Suspect]
     Active Substance: VENETOCLAX
     Indication: Chronic lymphocytic leukaemia
     Dosage: 400 MILLIGRAM
     Route: 048
     Dates: start: 20200401
  4. VENETOCLAX [Suspect]
     Active Substance: VENETOCLAX
     Indication: Chronic lymphocytic leukaemia
     Dosage: RAMP-UP
     Route: 048
     Dates: start: 20200217, end: 20200223
  5. VENETOCLAX [Suspect]
     Active Substance: VENETOCLAX
     Indication: Chronic lymphocytic leukaemia
     Dosage: 200 MILLIGRAM
     Route: 048
     Dates: start: 20200322, end: 20200331
  6. VENETOCLAX [Suspect]
     Active Substance: VENETOCLAX
     Indication: Chronic lymphocytic leukaemia
     Dosage: RAMP-UP
     Route: 048
     Dates: start: 20200224, end: 20200303
  7. VENETOCLAX [Suspect]
     Active Substance: VENETOCLAX
     Indication: Chronic lymphocytic leukaemia
     Dosage: INTERRUPTION DUE TO AE
     Route: 048
     Dates: start: 20200304, end: 20200311
  8. COVID-19 vaccine [Concomitant]
     Indication: COVID-19 prophylaxis
     Dates: start: 20210124, end: 20210124
  9. COVID-19 vaccine [Concomitant]
     Indication: COVID-19 prophylaxis
     Dates: start: 20211215, end: 20211215
  10. COVID-19 vaccine [Concomitant]
     Indication: COVID-19 prophylaxis
     Dates: start: 20210103, end: 20210103
  11. RENVELA [Concomitant]
     Active Substance: SEVELAMER CARBONATE
     Indication: Blood phosphorus increased
     Dates: start: 20200102, end: 20200216
  12. ALLOPURINOL [Concomitant]
     Active Substance: ALLOPURINOL
     Indication: Prophylaxis
     Dates: start: 20200130
  13. ASPIRIN [Concomitant]
     Active Substance: ASPIRIN
     Indication: Cardiovascular event prophylaxis
  14. ROSUVASTATIN [Concomitant]
     Active Substance: ROSUVASTATIN
     Indication: Product used for unknown indication
  15. HYDROCHLOROTHIAZIDE [Concomitant]
     Active Substance: HYDROCHLOROTHIAZIDE
     Indication: Hypertension
     Dates: end: 20200311
  16. ENALAPRIL MALEATE [Concomitant]
     Active Substance: ENALAPRIL MALEATE
     Indication: Hypertension
  17. JANUVIA [Concomitant]
     Active Substance: SITAGLIPTIN PHOSPHATE
     Indication: Diabetes mellitus
  18. NEXIUM [Concomitant]
     Active Substance: ESOMEPRAZOLE MAGNESIUM
     Indication: Gastric pH decreased
  19. HYDROCHLOROTHIAZIDE [Concomitant]
     Active Substance: HYDROCHLOROTHIAZIDE
     Indication: Product used for unknown indication
  20. CRESTOR [Concomitant]
     Active Substance: ROSUVASTATIN CALCIUM
     Indication: Hyperlipidaemia
  21. RITUXIMAB [Suspect]
     Active Substance: RITUXIMAB
     Indication: Chronic lymphocytic leukaemia
     Dosage: 907 MILLIGRAM?CYCLE 5
     Route: 065
     Dates: start: 20200902, end: 20200902
  22. RITUXIMAB [Suspect]
     Active Substance: RITUXIMAB
     Indication: Chronic lymphocytic leukaemia
     Dosage: 920 MILLIGRAM?CYCLE 2
     Route: 065
     Dates: start: 20200610, end: 20200610
  23. RITUXIMAB [Suspect]
     Active Substance: RITUXIMAB
     Indication: Chronic lymphocytic leukaemia
     Dosage: 907 MILLIGRAM?CYCLE 6
     Route: 065
     Dates: start: 20201028, end: 20201028
  24. RITUXIMAB [Suspect]
     Active Substance: RITUXIMAB
     Indication: Chronic lymphocytic leukaemia
     Dosage: 684 MILLIGRAM?CYCLE 1
     Route: 065
     Dates: start: 20200513, end: 20200513
  25. RITUXIMAB [Suspect]
     Active Substance: RITUXIMAB
     Indication: Chronic lymphocytic leukaemia
     Dosage: 913 MILLIGRAM?CYCLE 4
     Route: 065
     Dates: start: 20200805, end: 20200805
  26. RITUXIMAB [Suspect]
     Active Substance: RITUXIMAB
     Indication: Chronic lymphocytic leukaemia
     Dosage: 915 MILLIGRAM?CYCLE 3
     Route: 065
     Dates: start: 20200708, end: 20200708
  27. CALCIUM CARBONATE [Concomitant]
     Active Substance: CALCIUM CARBONATE
     Indication: Hyperphosphataemia
     Dates: start: 20200311

REACTIONS (4)
  - Disease progression [Unknown]
  - Ophthalmic herpes zoster [Recovered/Resolved]
  - Neutrophil count decreased [Recovered/Resolved]
  - Hyperphosphataemia [Recovered/Resolved]

NARRATIVE: CASE EVENT DATE: 20200201
